FAERS Safety Report 22883843 (Version 2)
Quarter: 2023Q4

REPORT INFORMATION
  Report Type: Spontaneous
  Country: US (occurrence: US)
  Receive Date: 20230830
  Receipt Date: 20231010
  Transmission Date: 20240109
  Serious: Yes (Life-Threatening, Hospitalization)
  Sender: FDA-Public Use
  Company Number: US-AMGEN-USASP2023149942

PATIENT
  Age: 65 Year
  Sex: Male

DRUGS (6)
  1. MVASI [Suspect]
     Active Substance: BEVACIZUMAB-AWWB
     Indication: Adenocarcinoma of colon
     Dosage: 5 MILLIGRAM/KG
     Route: 065
     Dates: start: 202202
  2. MVASI [Suspect]
     Active Substance: BEVACIZUMAB-AWWB
     Dosage: UNK
     Route: 065
     Dates: start: 202203
  3. LEUCOVORIN [Concomitant]
     Active Substance: LEUCOVORIN\LEUCOVORIN CALCIUM
     Dosage: 400 MILLIGRAM/M^2
     Route: 065
     Dates: start: 202202
  4. FLUOROURACIL [Concomitant]
     Active Substance: FLUOROURACIL
     Dosage: 400 MILLIGRAM/M^2
     Route: 065
     Dates: start: 202202
  5. FLUOROURACIL [Concomitant]
     Active Substance: FLUOROURACIL
     Dosage: 2400 MILLIGRAM/M^2
     Route: 065
     Dates: start: 202202
  6. FLUOROURACIL [Concomitant]
     Active Substance: FLUOROURACIL
     Dosage: UNK
     Route: 065
     Dates: start: 202203

REACTIONS (3)
  - Hyperammonaemic encephalopathy [Unknown]
  - Cardiac arrest [Unknown]
  - Off label use [Unknown]
